FAERS Safety Report 15526922 (Version 3)
Quarter: 2019Q1

REPORT INFORMATION
  Report Type: Spontaneous
  Country: US (occurrence: US)
  Receive Date: 20181018
  Receipt Date: 20190301
  Transmission Date: 20190417
  Serious: Yes (Other)
  Sender: FDA-Public Use
  Company Number: US-SA-2018SA286634

PATIENT
  Age: 49 Year
  Sex: Female
  Weight: 67.13 kg

DRUGS (8)
  1. TAMOXIFEN [Concomitant]
     Active Substance: TAMOXIFEN
     Dosage: UNK, UNK
     Route: 065
  2. NEOSAR [Concomitant]
     Active Substance: CYCLOPHOSPHAMIDE
     Dosage: UNK, UNK
     Route: 065
  3. ZOLPIDEM TARTRATE. [Concomitant]
     Active Substance: ZOLPIDEM TARTRATE
     Dosage: UNK, UNK
     Route: 065
  4. TAXOTERE [Suspect]
     Active Substance: DOCETAXEL
     Dosage: 130 UNK, UNK
     Route: 042
     Dates: start: 20120530, end: 20120530
  5. EPIPEN [Concomitant]
     Active Substance: EPINEPHRINE
     Dosage: UNK, UNK
     Route: 065
  6. TAXOTERE [Suspect]
     Active Substance: DOCETAXEL
     Indication: BREAST CANCER FEMALE
     Dosage: 130 MG, Q3W
     Route: 042
     Dates: start: 20120330, end: 20120330
  7. LORAZEPAM. [Concomitant]
     Active Substance: LORAZEPAM
     Dosage: UNK, UNK
     Route: 065
  8. VALCYCLOR [Concomitant]
     Dosage: UNK, UNK
     Route: 065

REACTIONS (6)
  - Anxiety [Unknown]
  - Alopecia [Recovering/Resolving]
  - Pain [Unknown]
  - Impaired quality of life [Unknown]
  - Emotional distress [Unknown]
  - Psychological trauma [Unknown]

NARRATIVE: CASE EVENT DATE: 20121130
